FAERS Safety Report 8622532 (Version 2)
Quarter: 2012Q4

REPORT INFORMATION
  Report Type: Spontaneous
  Country: CA (occurrence: None)
  Receive Date: 20120605
  Receipt Date: 20120928
  Transmission Date: 20130627
  Serious: Yes (Other)
  Sender: FDA-Public Use
  Company Number: 2012-002028

PATIENT
  Age: 70 Year
  Sex: Female
  Weight: 68 kg

DRUGS (4)
  1. ACTONEL [Suspect]
     Indication: BONE DISORDER
     Route: 048
     Dates: start: 2004
  2. CALCIUM CARBONATE [Concomitant]
  3. VAGIFEM [Concomitant]
  4. VITAMIN D [Concomitant]

REACTIONS (5)
  - Saliva altered [None]
  - Glossodynia [None]
  - Dysgeusia [None]
  - Dry mouth [None]
  - Asthenia [None]
